FAERS Safety Report 25357832 (Version 2)
Quarter: 2025Q3

REPORT INFORMATION
  Report Type: Report from Study
  Country: IN (occurrence: IN)
  Receive Date: 20250526
  Receipt Date: 20250803
  Transmission Date: 20251021
  Serious: Yes (Other)
  Sender: ALEXION PHARMACEUTICALS
  Company Number: IN-AstraZeneca-CH-00874657A

PATIENT
  Sex: Male

DRUGS (1)
  1. DURVALUMAB [Suspect]
     Active Substance: DURVALUMAB
     Indication: Biliary tract disorder
     Dosage: 1500 MILLIGRAM, Q3W

REACTIONS (3)
  - Thrombocytopenia [Unknown]
  - Leukopenia [Unknown]
  - Malaise [Unknown]
